FAERS Safety Report 5332689-7 (Version None)
Quarter: 2007Q2

REPORT INFORMATION
  Report Type: 
  Country: None (occurrence: None)
  Receive Date: 20070523
  Receipt Date: 20070511
  Transmission Date: 20071010
  Serious: Yes (Hospitalization)
  Sender: FDA-Public Use
  Company Number: SE-PFIZER INC-2007037513

PATIENT
  Sex: Male

DRUGS (4)
  1. DALACIN [Suspect]
     Indication: INFECTION
     Route: 048
     Dates: start: 20070201, end: 20070201
  2. METOPROLOL SUCCINATE [Concomitant]
  3. PREDNISOLONE [Concomitant]
     Route: 048
  4. NEOTIGASON [Concomitant]
     Route: 048

REACTIONS (1)
  - TOXIC EPIDERMAL NECROLYSIS [None]
